FAERS Safety Report 19813757 (Version 1)
Quarter: 2021Q3

REPORT INFORMATION
  Report Type: Spontaneous
  Country: US (occurrence: US)
  Receive Date: 20210908
  Receipt Date: 20210908
  Transmission Date: 20211014
  Serious: Yes (Hospitalization)
  Sender: FDA-Public Use
  Company Number: None

PATIENT
  Age: 66 Year
  Sex: Male
  Weight: 153.6 kg

DRUGS (1)
  1. CISPLATIN. [Suspect]
     Active Substance: CISPLATIN
     Dates: end: 20200805

REACTIONS (6)
  - Hypophagia [None]
  - Dysphagia [None]
  - Dysgeusia [None]
  - Tachycardia [None]
  - Dehydration [None]
  - Hypomagnesaemia [None]

NARRATIVE: CASE EVENT DATE: 20200815
